FAERS Safety Report 6108036-X (Version None)
Quarter: 2009Q1

REPORT INFORMATION
  Report Type: 
  Country: None (occurrence: None)
  Receive Date: 20090309
  Receipt Date: 20090204
  Transmission Date: 20090719
  Serious: No
  Sender: FDA-Public Use
  Company Number: US-BAYER-200910381BCC

PATIENT
  Age: 17 Year
  Sex: Female
  Weight: 57 kg

DRUGS (1)
  1. MIDOL [Suspect]
     Indication: DYSMENORRHOEA
     Dates: start: 20090203

REACTIONS (2)
  - ABDOMINAL DISCOMFORT [None]
  - VOMITING [None]
